FAERS Safety Report 20657185 (Version 1)
Quarter: 2022Q1

REPORT INFORMATION
  Report Type: Spontaneous
  Country: US (occurrence: US)
  Receive Date: 20220331
  Receipt Date: 20220331
  Transmission Date: 20220423
  Serious: No
  Sender: FDA-Public Use
  Company Number: US-ELI_LILLY_AND_COMPANY-US202203011738

PATIENT
  Sex: Female

DRUGS (4)
  1. HUMALOG JUNIOR KWIKPEN [Suspect]
     Active Substance: INSULIN LISPRO
     Indication: Product used for unknown indication
     Dosage: UNK UNK, UNKNOWN
     Route: 058
  2. HUMALOG JUNIOR KWIKPEN [Suspect]
     Active Substance: INSULIN LISPRO
     Indication: Product used for unknown indication
     Dosage: UNK UNK, UNKNOWN
     Route: 058
  3. TOUJEO [Concomitant]
     Active Substance: INSULIN GLARGINE
     Indication: Product used for unknown indication
     Dosage: 1 U, OTHER (FOR EVERY 12 CARBS IF HER BG IS OVER 150)
  4. TOUJEO [Concomitant]
     Active Substance: INSULIN GLARGINE
     Dosage: 3 U, OTHER (150 SHE TAKES TWO EXTRA UNITS TO START AND ADD THE AMOUNT OF CARBS TO THAT)

REACTIONS (2)
  - Blood glucose fluctuation [Recovering/Resolving]
  - Incorrect product administration duration [Unknown]
